FAERS Safety Report 6024617-6 (Version None)
Quarter: 2008Q4

REPORT INFORMATION
  Report Type: 
  Country: None (occurrence: None)
  Receive Date: 20081231
  Receipt Date: 20081219
  Transmission Date: 20090506
  Serious: Yes (Life-Threatening, Hospitalization)
  Sender: FDA-Public Use
  Company Number: CH-PFIZER INC-2008157885

PATIENT

DRUGS (4)
  1. ALDACTONE [Suspect]
     Dosage: UNK
     Route: 048
     Dates: start: 20080801, end: 20080801
  2. SINTROM [Concomitant]
     Dosage: UNK
     Route: 048
  3. LESCOL [Concomitant]
     Dosage: 40 MG, 1X/DAY
     Route: 048
  4. PRADIF [Concomitant]
     Dosage: 400 UG, 1X/DAY
     Route: 048

REACTIONS (2)
  - HYPERKALAEMIA [None]
  - SEPSIS [None]
